FAERS Safety Report 5158400-0 (Version None)
Quarter: 2006Q4

REPORT INFORMATION
  Report Type: 
  Country: None (occurrence: None)
  Receive Date: 20061128
  Receipt Date: 20060222
  Transmission Date: 20070319
  Serious: Yes (Life-Threatening, Other)
  Sender: FDA-Public Use
  Company Number: PHBS2006JP03030

PATIENT
  Age: 22 Year
  Sex: Male

DRUGS (13)
  1. SANDIMMUNE [Suspect]
     Indication: CORD BLOOD TRANSPLANT THERAPY
     Dosage: 150 MG/DAY
     Route: 042
     Dates: start: 20050303, end: 20050313
  2. SANDIMMUNE [Suspect]
     Dosage: 100 MG/DAY
     Route: 042
     Dates: start: 20050314, end: 20050419
  3. SANDIMMUNE [Suspect]
     Dosage: 200 MG/DAY
     Route: 042
     Dates: start: 20050420, end: 20050507
  4. NEORAL [Suspect]
     Indication: CORD BLOOD TRANSPLANT THERAPY
     Dosage: 300 MG/DAY
     Route: 048
     Dates: start: 20050224, end: 20050303
  5. NEORAL [Suspect]
     Dosage: 300 MG/DAY
     Route: 048
     Dates: start: 20050508, end: 20051004
  6. MYCOPHENOLATE MOFETIL [Suspect]
     Indication: CORD BLOOD TRANSPLANT THERAPY
     Dosage: 1 G/DAY
     Route: 048
     Dates: start: 20060226
  7. MYCOPHENOLATE MOFETIL [Suspect]
     Dosage: 1.5 G/D
     Route: 048
     Dates: start: 20050315
  8. MYCOPHENOLATE MOFETIL [Suspect]
     Dosage: 1 G/D
     Route: 048
     Dates: start: 20050414, end: 20050420
  9. MYCOPHENOLATE MOFETIL [Suspect]
     Dosage: 750 MG/D
     Route: 048
     Dates: start: 20050421, end: 20050614
  10. MYCOPHENOLATE MOFETIL [Suspect]
     Dosage: 500 MG/D
     Route: 048
     Dates: start: 20050615, end: 20050622
  11. ETOPOSIDE [Concomitant]
     Indication: CORD BLOOD TRANSPLANT THERAPY
  12. THIOTEPA [Concomitant]
     Indication: CORD BLOOD TRANSPLANT THERAPY
  13. IRRADIATION [Concomitant]

REACTIONS (9)
  - ASCITES [None]
  - BK VIRUS INFECTION [None]
  - CYSTITIS HAEMORRHAGIC [None]
  - DERMATITIS [None]
  - DIARRHOEA [None]
  - GRAFT VERSUS HOST DISEASE [None]
  - HAEMATURIA [None]
  - PLEURAL EFFUSION [None]
  - VENOOCCLUSIVE DISEASE [None]
